FAERS Safety Report 24018763 (Version 2)
Quarter: 2024Q3

REPORT INFORMATION
  Report Type: Report from Study
  Country: US (occurrence: US)
  Receive Date: 20240627
  Receipt Date: 20240705
  Transmission Date: 20241017
  Serious: Yes (Death)
  Sender: ROCHE
  Company Number: US-ROCHE-3554182

PATIENT
  Age: 85 Year
  Sex: Female
  Weight: 43.3 kg

DRUGS (4)
  1. XOLAIR [Suspect]
     Active Substance: OMALIZUMAB
     Indication: Asthma
     Dosage: MORE DOSAGE INFORMATION IS 150 MG PREFILLED SYRINGE?INJECT 2 ML (300 MG) INTO THE SKIN EVERY 28 DAYS
     Route: 058
     Dates: start: 20240405
  2. XOLAIR [Suspect]
     Active Substance: OMALIZUMAB
     Indication: Asthma
  3. LEVAQUIN [Concomitant]
     Active Substance: LEVOFLOXACIN
  4. CODEINE [Concomitant]
     Active Substance: CODEINE

REACTIONS (1)
  - Death [Fatal]

NARRATIVE: CASE EVENT DATE: 20240419
